FAERS Safety Report 6564527-9 (Version None)
Quarter: 2010Q1

REPORT INFORMATION
  Report Type: 
  Country: None (occurrence: None)
  Receive Date: 20100201
  Receipt Date: 20100120
  Transmission Date: 20100710
  Serious: Yes (Hospitalization)
  Sender: FDA-Public Use
  Company Number: ES-ELI_LILLY_AND_COMPANY-ES201001004198

PATIENT
  Age: 74 Year
  Sex: Female

DRUGS (3)
  1. FORTEO [Suspect]
     Indication: OSTEOPOROSIS
     Dosage: 20 UG, DAILY (1/D)
     Route: 058
     Dates: start: 20090527, end: 20091203
  2. FORTEO [Suspect]
     Dosage: 20 UG, DAILY (1/D)
     Route: 058
     Dates: start: 20091212, end: 20100106
  3. ADIRO [Concomitant]
     Indication: CARDIOVASCULAR DISORDER
     Dosage: 100 MG, DAILY (1/D)
     Route: 048
     Dates: end: 20091123

REACTIONS (2)
  - HAEMORRHAGE [None]
  - THROMBOPHLEBITIS [None]
